FAERS Safety Report 6341931-5 (Version None)
Quarter: 2009Q3

REPORT INFORMATION
  Report Type: 
  Country: None (occurrence: None)
  Receive Date: 20090904
  Receipt Date: 20090903
  Transmission Date: 20100115
  Serious: Yes (Death, Hospitalization)
  Sender: FDA-Public Use
  Company Number: PHHO2009FR10464

PATIENT
  Sex: Female
  Weight: 84 kg

DRUGS (9)
  1. RAD 666 RAD+TAB [Suspect]
     Indication: RENAL CANCER METASTATIC
     Dosage: UNK
     Route: 048
     Dates: start: 20090703, end: 20090807
  2. RAD 666 RAD+TAB [Suspect]
     Dosage: NO TREATMENT
     Dates: start: 20090808
  3. DURAGESIC-100 [Concomitant]
  4. ACTISKENAN [Concomitant]
  5. PARACETAMOL [Concomitant]
  6. LEVOTHYROXINE SODIUM [Concomitant]
  7. LYRICA [Concomitant]
  8. ATENOLOL [Concomitant]
  9. KAYEXALATE [Concomitant]

REACTIONS (16)
  - ACUTE RESPIRATORY FAILURE [None]
  - ANURIA [None]
  - ASTHENIA [None]
  - COMA [None]
  - CONFUSIONAL STATE [None]
  - CONVULSION [None]
  - ENDOTRACHEAL INTUBATION [None]
  - HAEMODIALYSIS [None]
  - HYPERKALAEMIA [None]
  - MALAISE [None]
  - MALIGNANT NEOPLASM PROGRESSION [None]
  - MECHANICAL VENTILATION [None]
  - RENAL CANCER METASTATIC [None]
  - RENAL FAILURE ACUTE [None]
  - SHOCK [None]
  - TONIC CLONIC MOVEMENTS [None]
